FAERS Safety Report 25553644 (Version 1)
Quarter: 2025Q3

REPORT INFORMATION
  Report Type: Spontaneous
  Country: US (occurrence: US)
  Receive Date: 20250715
  Receipt Date: 20250715
  Transmission Date: 20251021
  Serious: No
  Sender: Kenvue
  Company Number: US-KENVUE-20250703153

PATIENT
  Sex: Female

DRUGS (1)
  1. TYLENOL 8 HR ARTHRITIS PAIN [Suspect]
     Active Substance: ACETAMINOPHEN
     Indication: Arthritis
     Dosage: TAKING IT EVERY 12 HOURS, USUALLY TAKE IT AT 9 AM, THEN 9 PM
     Route: 065

REACTIONS (1)
  - Inappropriate schedule of product administration [Unknown]
